FAERS Safety Report 15953525 (Version 1)
Quarter: 2019Q1

REPORT INFORMATION
  Report Type: Spontaneous
  Country: GB (occurrence: GB)
  Receive Date: 20190212
  Receipt Date: 20190212
  Transmission Date: 20190417
  Serious: Yes (Hospitalization)
  Sender: FDA-Public Use
  Company Number: GB-PFIZER INC-2019054707

PATIENT
  Age: 81 Year
  Sex: Male

DRUGS (2)
  1. DOXAZOSIN MESILATE [Suspect]
     Active Substance: DOXAZOSIN MESYLATE
     Dosage: 2 MG, 1X/DAY
     Dates: start: 20180830
  2. BISOPROLOL FUMARATE. [Suspect]
     Active Substance: BISOPROLOL FUMARATE
     Dosage: 2.5 MG, 1X/DAY
     Dates: start: 20180830

REACTIONS (9)
  - Product dispensing error [Unknown]
  - Documented hypersensitivity to administered product [Unknown]
  - Renal failure [Unknown]
  - Dyspnoea [Unknown]
  - Circulatory collapse [Unknown]
  - Hyperkalaemia [Unknown]
  - Incorrect dose administered [Unknown]
  - Bradycardia [Unknown]
  - Loss of consciousness [Unknown]

NARRATIVE: CASE EVENT DATE: 20181001
